FAERS Safety Report 6035505-3 (Version None)
Quarter: 2009Q1

REPORT INFORMATION
  Report Type: 
  Country: None (occurrence: None)
  Receive Date: 20090113
  Receipt Date: 20090105
  Transmission Date: 20090719
  Serious: Yes (Other)
  Sender: FDA-Public Use
  Company Number: US-AVENTIS-200818321US

PATIENT
  Age: 49 Year
  Sex: Female

DRUGS (4)
  1. ENOXAPARIN SODIUM [Suspect]
     Indication: DEEP VEIN THROMBOSIS
     Dosage: DOSE: UNK
     Route: 051
  2. ENOXAPARIN SODIUM [Suspect]
     Indication: PULMONARY EMBOLISM
     Dosage: DOSE: UNK
     Route: 051
  3. HEPARIN [Concomitant]
     Dosage: DOSE: UNK
  4. WARFARIN [Concomitant]
     Dosage: DOSE: UNK

REACTIONS (3)
  - ADRENAL INSUFFICIENCY [None]
  - HEPARIN-INDUCED THROMBOCYTOPENIA [None]
  - HYPOTENSION [None]
